FAERS Safety Report 9123330 (Version 2)
Quarter: 2013Q2

REPORT INFORMATION
  Report Type: Spontaneous
  Country: US (occurrence: US)
  Receive Date: 20130115
  Receipt Date: 20130429
  Transmission Date: 20140414
  Serious: Yes (Other)
  Sender: FDA-Public Use
  Company Number: US-009507513-1301USA003310

PATIENT
  Age: 30 Year
  Sex: Female

DRUGS (8)
  1. MONTELUKAST SODIUM [Suspect]
     Indication: BIPOLAR DISORDER
  2. PROZAC [Suspect]
     Dosage: 20 MG, QD
  3. METFORMIN HYDROCHLORIDE [Suspect]
     Indication: BIPOLAR DISORDER
     Dosage: UNK
     Route: 048
  4. GEODON [Suspect]
     Dosage: 40 MG, QD
     Route: 048
  5. GEODON [Suspect]
     Dosage: 80 MG, QD
     Route: 048
  6. CYMBALTA [Concomitant]
     Dosage: 60 MG, QD
     Route: 048
  7. TOPAMAX [Concomitant]
     Dosage: 150 MG, QD
     Route: 048
  8. TRAZODONE HYDROCHLORIDE [Concomitant]
     Dosage: 50 MG, QD AS NEEDED

REACTIONS (5)
  - Urinary tract infection [Unknown]
  - Premature labour [Unknown]
  - Exposure during pregnancy [Unknown]
  - Caesarean section [Unknown]
  - Pregnancy [Unknown]
